FAERS Safety Report 13343335 (Version 1)
Quarter: 2017Q1

REPORT INFORMATION
  Report Type: Report from Study
  Country: US (occurrence: US)
  Receive Date: 20170316
  Receipt Date: 20170316
  Transmission Date: 20170428
  Serious: No
  Sender: FDA-Public Use
  Company Number: US-REGENERON PHARMACEUTICALS, INC.-2017-10806

PATIENT

DRUGS (2)
  1. ARCALYST [Suspect]
     Active Substance: RILONACEPT
     Indication: PRODUCT USED FOR UNKNOWN INDICATION
     Dosage: 220 MG MILLIGRAM(S)
     Route: 058
     Dates: start: 20160215
  2. ARCALYST [Suspect]
     Active Substance: RILONACEPT
     Dosage: 220 MG MILLIGRAM(S)
     Route: 058
     Dates: end: 201701

REACTIONS (2)
  - Pain [Unknown]
  - Inflammation [Unknown]
